FAERS Safety Report 23454321 (Version 3)
Quarter: 2024Q3

REPORT INFORMATION
  Report Type: Spontaneous
  Country: CA (occurrence: CA)
  Receive Date: 20240130
  Receipt Date: 20240910
  Transmission Date: 20241016
  Serious: Yes (Other)
  Sender: CELLTRION
  Company Number: CA-CELLTRION INC.-2024CA002078

PATIENT

DRUGS (17)
  1. INFLECTRA [Suspect]
     Active Substance: INFLIXIMAB-DYYB
     Indication: Colitis ulcerative
     Dosage: 5 MG/KG, INDUCTION WEEKS 0, 2 AND 6 THEN MAINTENANCE EVERY 8 WEEKS
     Route: 042
     Dates: start: 20220718
  2. INFLECTRA [Suspect]
     Active Substance: INFLIXIMAB-DYYB
     Dosage: 5 MG/KG, INDUCTION WEEKS 0, 2 AND 6 THEN MAINTENANCE EVERY 8 WEEKS
     Route: 042
     Dates: start: 20231124
  3. INFLECTRA [Suspect]
     Active Substance: INFLIXIMAB-DYYB
     Dosage: 5 MG/KG (510 MG), AFTER 8 WEEKS
     Route: 042
     Dates: start: 20240119
  4. INFLECTRA [Suspect]
     Active Substance: INFLIXIMAB-DYYB
     Dosage: 5 MG/KG, INDUCTION WEEKS 0, 2 AND 6 THEN MAINTENANCE EVERY 8 WEEKS
     Route: 042
     Dates: start: 20240704, end: 20240704
  5. ALLOPURINOL [Concomitant]
     Active Substance: ALLOPURINOL
     Dosage: 1 DF
     Route: 065
  6. ASPIRIN [Concomitant]
     Active Substance: ASPIRIN
     Dosage: 1 DF
     Route: 065
  7. CLOTRIMAZOLE [Concomitant]
     Active Substance: CLOTRIMAZOLE
     Dosage: 1 DF
     Route: 065
  8. CORTISONE [Concomitant]
     Active Substance: CORTISONE
     Dosage: 1 DF
     Route: 065
  9. DEXILANT [Concomitant]
     Active Substance: DEXLANSOPRAZOLE
     Dosage: 1 DF
     Route: 065
  10. FLOMAX [Concomitant]
     Active Substance: TAMSULOSIN HYDROCHLORIDE
     Dosage: UNK
  11. IMODIUM [Concomitant]
     Active Substance: LOPERAMIDE HYDROCHLORIDE
     Dosage: 8 DF, 1X/DAY (1 DF, 8 PILLS PER DAY)
     Route: 048
     Dates: start: 202109
  12. LIPITOR [Concomitant]
     Active Substance: ATORVASTATIN CALCIUM
     Dosage: 1 DF
     Route: 065
  13. METFORMIN [Concomitant]
     Active Substance: METFORMIN HYDROCHLORIDE
     Dosage: 1 DF
     Route: 065
  14. OZEMPIC [Concomitant]
     Active Substance: SEMAGLUTIDE
     Dosage: UNK
  15. ROSUVASTATIN [Concomitant]
     Active Substance: ROSUVASTATIN\ROSUVASTATIN CALCIUM
     Dosage: UNK
  16. SYNTHROID [Concomitant]
     Active Substance: LEVOTHYROXINE SODIUM
     Dosage: 1 DF
     Route: 065
  17. VALSARTAN [Concomitant]
     Active Substance: VALSARTAN
     Dosage: 1 DF
     Route: 065

REACTIONS (3)
  - Renal mass [Not Recovered/Not Resolved]
  - Neoplasm recurrence [Not Recovered/Not Resolved]
  - Condition aggravated [Not Recovered/Not Resolved]

NARRATIVE: CASE EVENT DATE: 20240101
